FAERS Safety Report 16839606 (Version 1)
Quarter: 2019Q3

REPORT INFORMATION
  Report Type: Spontaneous
  Country: US (occurrence: US)
  Receive Date: 20190801
  Receipt Date: 20190801
  Transmission Date: 20191005
  Serious: No
  Sender: FDA-Public Use
  Company Number: None

PATIENT
  Age: 75 Year
  Sex: Female

DRUGS (2)
  1. ADCIRCA [Suspect]
     Active Substance: TADALAFIL
     Indication: PULMONARY ARTERIAL HYPERTENSION
     Route: 048
  2. OPSUMIT [Concomitant]
     Active Substance: MACITENTAN

REACTIONS (2)
  - Clostridium difficile infection [None]
  - Pneumonia [None]

NARRATIVE: CASE EVENT DATE: 20190707
